FAERS Safety Report 18795642 (Version 3)
Quarter: 2024Q2

REPORT INFORMATION
  Report Type: Spontaneous
  Country: PT (occurrence: PT)
  Receive Date: 20210127
  Receipt Date: 20240606
  Transmission Date: 20240716
  Serious: Yes (Death, Hospitalization, Other)
  Sender: FDA-Public Use
  Company Number: PT-ASTELLAS-2021US002437

PATIENT
  Age: 79 Year
  Sex: Male

DRUGS (4)
  1. BENDAMUSTINE [Suspect]
     Active Substance: BENDAMUSTINE
     Indication: Diffuse large B-cell lymphoma
     Dosage: UNK, CYCLIC (6 CYCLES)
     Route: 042
  2. BENDAMUSTINE [Suspect]
     Active Substance: BENDAMUSTINE
     Indication: Diffuse large B-cell lymphoma
     Dosage: TIME INTERVAL: CYCLICAL: DOSAGE TEXT: (6 CYCLES)
     Route: 042
  3. RITUXIMAB [Suspect]
     Active Substance: RITUXIMAB
     Indication: B-cell lymphoma stage II
     Dosage: UNK, CYCLIC (6 CYCLES)
     Route: 065
  4. RITUXIMAB [Suspect]
     Active Substance: RITUXIMAB
     Indication: B-cell lymphoma stage II
     Dosage: TIME INTERVAL: CYCLICAL: DOSAGE TEXT: (6 CYCLES)
     Route: 065

REACTIONS (2)
  - Encephalopathy [Fatal]
  - Off label use [Unknown]
